FAERS Safety Report 8873055 (Version 1)
Quarter: 2012Q4

REPORT INFORMATION
  Report Type: 
  Country: GB (occurrence: GB)
  Receive Date: 20121029
  Receipt Date: 20121029
  Transmission Date: 20130627
  Serious: Yes (Other)
  Sender: FDA-Public Use
  Company Number: GB-009507513-1210GBR012345

PATIENT
  Age: 55 Year
  Sex: Male
  Weight: 74.38 kg

DRUGS (6)
  1. DEXAMETHASONE TABLETS BP  2.0MG [Suspect]
     Indication: MENINGIOMA SURGERY
     Dosage: 4 mg, UNK
     Route: 048
     Dates: start: 20121005, end: 20121011
  2. DEXAMETHASONE TABLETS BP  2.0MG [Suspect]
     Dosage: 16 mg, UNK
     Route: 048
     Dates: start: 20120717, end: 20121005
  3. AMITRIPTYLINE HYDROCHLORIDE [Concomitant]
  4. LANSOPRAZOLE [Concomitant]
  5. LEVETIRACETAM [Concomitant]
  6. ACETAMINOPHEN [Concomitant]

REACTIONS (2)
  - Arthralgia [Not Recovered/Not Resolved]
  - Pain in extremity [Not Recovered/Not Resolved]
